FAERS Safety Report 5594261-3 (Version None)
Quarter: 2008Q1

REPORT INFORMATION
  Report Type: 
  Country: None (occurrence: None)
  Receive Date: 20080117
  Receipt Date: 20080114
  Transmission Date: 20080703
  Serious: Yes (Other)
  Sender: FDA-Public Use
  Company Number: GB-BRISTOL-MYERS SQUIBB COMPANY-14028088

PATIENT
  Age: 42 Year
  Sex: Female

DRUGS (3)
  1. BUSPAR [Suspect]
     Dosage: INTERVAL = 1 DAY
     Route: 048
     Dates: start: 20070801, end: 20071101
  2. EFFEXOR [Suspect]
     Dosage: INTERVAL = 1 DAY
     Route: 048
     Dates: start: 20071113
  3. PROPRANOLOL HCL [Suspect]
     Route: 048
     Dates: start: 20070801, end: 20071001

REACTIONS (9)
  - BEDRIDDEN [None]
  - BURNING SENSATION [None]
  - DIZZINESS [None]
  - HEADACHE [None]
  - HYPOTENSION [None]
  - LETHARGY [None]
  - MYDRIASIS [None]
  - NAUSEA [None]
  - VISION BLURRED [None]
